FAERS Safety Report 6457553-1 (Version None)
Quarter: 2009Q4

REPORT INFORMATION
  Report Type: 
  Country: None (occurrence: None)
  Receive Date: 20091120
  Receipt Date: 20091109
  Transmission Date: 20100525
  Serious: Yes (Other)
  Sender: FDA-Public Use
  Company Number: 230037M09GBR

PATIENT
  Age: 42 Year
  Sex: Female

DRUGS (3)
  1. REBIF [Suspect]
     Dosage: 44 MCG, 3 IN 1 WEEKS, SUBCUTANEOUS
     Route: 058
     Dates: start: 20050601
  2. DOCETAXEL [Concomitant]
  3. CAPECITABINE [Concomitant]

REACTIONS (2)
  - METASTASES TO BONE [None]
  - METASTASES TO LIVER [None]
